FAERS Safety Report 14245004 (Version 1)
Quarter: 2017Q4

REPORT INFORMATION
  Report Type: Report from Study
  Country: FR (occurrence: FR)
  Receive Date: 20171201
  Receipt Date: 20171201
  Transmission Date: 20180321
  Serious: Yes (Other)
  Sender: FDA-Public Use
  Company Number: FR-ROCHE-2029911

PATIENT
  Sex: Female

DRUGS (3)
  1. CORDARONE [Concomitant]
     Active Substance: AMIODARONE HYDROCHLORIDE
  2. CAPECITABINE. [Suspect]
     Active Substance: CAPECITABINE
     Indication: PANCREATIC CARCINOMA METASTATIC
     Dosage: MOST RECENT DOSE PRIOR TO EVENT WAS ON 18/OCT/2017
     Route: 048
     Dates: start: 20170913, end: 20171025
  3. LEVOTHYROX [Concomitant]
     Active Substance: LEVOTHYROXINE

REACTIONS (8)
  - General physical health deterioration [Unknown]
  - Abdominal pain [Unknown]
  - Anaemia [Unknown]
  - Malnutrition [Unknown]
  - Hypothyroidism [Unknown]
  - Hypokalaemia [Unknown]
  - Thrombocytopenia [Unknown]
  - Vomiting [Unknown]
